FAERS Safety Report 6113658-6 (Version None)
Quarter: 2009Q1

REPORT INFORMATION
  Report Type: 
  Country: None (occurrence: None)
  Receive Date: 20090312
  Receipt Date: 20090227
  Transmission Date: 20090719
  Serious: Yes (Hospitalization)
  Sender: FDA-Public Use
  Company Number: PHHY2009FR07279

PATIENT
  Sex: Female

DRUGS (1)
  1. NISISCO [Suspect]
     Dosage: 1 DOSAGE ONCE DAILY
     Route: 048
     Dates: end: 20080528

REACTIONS (3)
  - HYPONATRAEMIA [None]
  - INSOMNIA [None]
  - WEIGHT DECREASED [None]
